FAERS Safety Report 6936942-2 (Version None)
Quarter: 2010Q3

REPORT INFORMATION
  Report Type: 
  Country: None (occurrence: None)
  Receive Date: 20100823
  Receipt Date: 20100709
  Transmission Date: 20110219
  Serious: Yes (Other)
  Sender: FDA-Public Use
  Company Number: US-BAXTER-2010BH003600

PATIENT
  Age: 54 Year
  Sex: Male
  Weight: 95 kg

DRUGS (44)
  1. HEPARIN SODIUM INJECTION [Suspect]
     Indication: CARDIOVASCULAR EVENT PROPHYLAXIS
     Route: 040
     Dates: start: 20080417, end: 20080417
  2. HEPARIN SODIUM INJECTION [Suspect]
     Indication: CORONARY ARTERY BYPASS
     Route: 040
     Dates: start: 20080417, end: 20080417
  3. HEPARIN SODIUM INJECTION [Suspect]
     Indication: INTRA-AORTIC BALLOON PLACEMENT
     Route: 040
     Dates: start: 20080417, end: 20080417
  4. HEPARIN SODIUM INJECTION [Suspect]
     Indication: THROMBOEMBOLECTOMY
     Route: 040
     Dates: start: 20080417, end: 20080417
  5. HEPARIN SODIUM INJECTION [Suspect]
     Route: 042
     Dates: start: 20080422, end: 20080422
  6. HEPARIN SODIUM INJECTION [Suspect]
     Route: 042
     Dates: start: 20080422, end: 20080422
  7. HEPARIN SODIUM INJECTION [Suspect]
     Route: 042
     Dates: start: 20080422, end: 20080422
  8. HEPARIN SODIUM INJECTION [Suspect]
     Route: 042
     Dates: start: 20080422, end: 20080422
  9. HEPARIN SODIUM INJECTION [Suspect]
     Route: 058
     Dates: start: 20080420, end: 20080421
  10. HEPARIN SODIUM INJECTION [Suspect]
     Route: 058
     Dates: start: 20080420, end: 20080421
  11. HEPARIN SODIUM INJECTION [Suspect]
     Route: 058
     Dates: start: 20080420, end: 20080421
  12. HEPARIN SODIUM INJECTION [Suspect]
     Route: 058
     Dates: start: 20080420, end: 20080421
  13. HEPARIN SODIUM INJECTION [Suspect]
     Route: 040
     Dates: start: 20080418, end: 20080418
  14. HEPARIN SODIUM INJECTION [Suspect]
     Route: 040
     Dates: start: 20080418, end: 20080418
  15. HEPARIN SODIUM INJECTION [Suspect]
     Route: 040
     Dates: start: 20080418, end: 20080418
  16. HEPARIN SODIUM INJECTION [Suspect]
     Route: 040
     Dates: start: 20080418, end: 20080418
  17. HEPARIN SODIUM INJECTION [Suspect]
     Route: 042
     Dates: start: 20080422, end: 20080422
  18. HEPARIN SODIUM INJECTION [Suspect]
     Route: 042
     Dates: start: 20080422, end: 20080422
  19. HEPARIN SODIUM INJECTION [Suspect]
     Route: 042
     Dates: start: 20080422, end: 20080422
  20. HEPARIN SODIUM INJECTION [Suspect]
     Route: 042
     Dates: start: 20080422, end: 20080422
  21. HEPARIN SODIUM INJECTION [Suspect]
     Route: 042
     Dates: start: 20080423, end: 20080423
  22. HEPARIN SODIUM INJECTION [Suspect]
     Route: 042
     Dates: start: 20080423, end: 20080423
  23. HEPARIN SODIUM INJECTION [Suspect]
     Route: 042
     Dates: start: 20080423, end: 20080423
  24. HEPARIN SODIUM INJECTION [Suspect]
     Route: 042
     Dates: start: 20080423, end: 20080423
  25. HEPARIN SODIUM 10,000 UNITS IN SODIUM CHLORIDE 0.45% [Suspect]
     Indication: CARDIOVASCULAR EVENT PROPHYLAXIS
     Route: 042
     Dates: start: 20080417, end: 20080419
  26. GLIPIZIDE [Concomitant]
     Indication: PRODUCT USED FOR UNKNOWN INDICATION
     Route: 048
  27. METFORMIN [Concomitant]
     Indication: PRODUCT USED FOR UNKNOWN INDICATION
     Route: 048
  28. DIOVAN [Concomitant]
     Indication: PRODUCT USED FOR UNKNOWN INDICATION
     Route: 048
  29. KLOR-CON [Concomitant]
     Indication: PRODUCT USED FOR UNKNOWN INDICATION
     Route: 048
  30. FUROSEMIDE [Concomitant]
     Indication: PRODUCT USED FOR UNKNOWN INDICATION
     Route: 048
  31. DIGITEK [Concomitant]
     Indication: PRODUCT USED FOR UNKNOWN INDICATION
     Route: 048
  32. ASPIRIN [Concomitant]
     Indication: PRODUCT USED FOR UNKNOWN INDICATION
     Route: 048
  33. ANCEF [Concomitant]
     Indication: PRODUCT USED FOR UNKNOWN INDICATION
     Route: 042
  34. ATORVASTATIN [Concomitant]
     Indication: PRODUCT USED FOR UNKNOWN INDICATION
     Route: 065
  35. CARVEDILOL [Concomitant]
     Indication: PRODUCT USED FOR UNKNOWN INDICATION
     Route: 065
  36. CHLORHEXIDINE GLUCONATE [Concomitant]
     Indication: PRODUCT USED FOR UNKNOWN INDICATION
     Route: 048
  37. DOCUSATE [Concomitant]
     Indication: PRODUCT USED FOR UNKNOWN INDICATION
     Route: 065
  38. IRBESARTAN [Concomitant]
     Indication: PRODUCT USED FOR UNKNOWN INDICATION
     Route: 065
  39. LISINOPRIL [Concomitant]
     Indication: PRODUCT USED FOR UNKNOWN INDICATION
     Route: 065
  40. MORPHINE [Concomitant]
     Indication: PAIN
     Route: 065
  41. MUPIROCIN [Concomitant]
     Indication: PRODUCT USED FOR UNKNOWN INDICATION
     Route: 061
  42. PANTOPRAZOLE [Concomitant]
     Indication: PRODUCT USED FOR UNKNOWN INDICATION
     Route: 065
  43. PAPAVERINE [Concomitant]
     Indication: PRODUCT USED FOR UNKNOWN INDICATION
     Route: 065
  44. SODIUM CHLORIDE 0.9% IN PLASTIC CONTAINER [Concomitant]
     Indication: PRODUCT USED FOR UNKNOWN INDICATION
     Route: 042

REACTIONS (11)
  - ABDOMINAL PAIN [None]
  - ANAEMIA [None]
  - ARTERIAL THROMBOSIS LIMB [None]
  - ASTHENIA [None]
  - CHILLS [None]
  - CONSTIPATION [None]
  - HEADACHE [None]
  - LEUKOCYTOSIS [None]
  - PYREXIA [None]
  - RENAL FAILURE [None]
  - VOMITING [None]
